FAERS Safety Report 12681476 (Version 1)
Quarter: 2016Q3

REPORT INFORMATION
  Report Type: Spontaneous
  Country: US (occurrence: US)
  Receive Date: 20160824
  Receipt Date: 20160824
  Transmission Date: 20161109
  Serious: No
  Sender: FDA-Public Use
  Company Number: US-BAYER-2016-156786

PATIENT
  Age: 91 Year
  Sex: Female
  Weight: 60.32 kg

DRUGS (17)
  1. PRESERVISION EYE VITAMIN AND MINERAL SUPPL. [Concomitant]
  2. POTASSIUM [Concomitant]
     Active Substance: POTASSIUM
  3. VITAMIN D [Concomitant]
     Active Substance: CHOLECALCIFEROL
  4. FUROSEMIDE. [Concomitant]
     Active Substance: FUROSEMIDE
  5. CARVEDILOL. [Concomitant]
     Active Substance: CARVEDILOL
  6. ICAPS [Concomitant]
     Active Substance: MINERALS\VITAMINS
  7. ST. JOHN^S WORT [Concomitant]
     Active Substance: ST. JOHN^S WORT
  8. VITAMIN C [Concomitant]
     Active Substance: ASCORBIC ACID
  9. MIRALAX [Suspect]
     Active Substance: POLYETHYLENE GLYCOL 3350
     Indication: CONSTIPATION
     Dosage: UNK, QD
  10. ALLOPURINOL. [Concomitant]
     Active Substance: ALLOPURINOL
  11. BAYER LOW DOSE [Concomitant]
     Active Substance: ASPIRIN
  12. ISOSORBIDE. [Concomitant]
     Active Substance: ISOSORBIDE
  13. VITAMIN B12 [Concomitant]
     Active Substance: CYANOCOBALAMIN
  14. PLAVIX [Concomitant]
     Active Substance: CLOPIDOGREL BISULFATE
  15. DIGOXIN. [Concomitant]
     Active Substance: DIGOXIN
  16. MIRABEGRON [Concomitant]
     Active Substance: MIRABEGRON
  17. HYDRALAZINE [Concomitant]
     Active Substance: HYDRALAZINE HYDROCHLORIDE

REACTIONS (4)
  - Frequent bowel movements [Recovered/Resolved]
  - Diarrhoea [Recovered/Resolved]
  - Product use issue [None]
  - Off label use [None]
